FAERS Safety Report 4930004-1 (Version None)
Quarter: 2006Q1

REPORT INFORMATION
  Report Type: 
  Country: None (occurrence: None)
  Receive Date: 20060302
  Receipt Date: 20060213
  Transmission Date: 20060701
  Serious: Yes (Hospitalization, Other)
  Sender: FDA-Public Use
  Company Number: PHEH2006US02075

PATIENT
  Age: 65 Year
  Sex: Male

DRUGS (3)
  1. ALLEGRA [Concomitant]
  2. TRIAMTERENE [Suspect]
     Indication: HYPERTENSION
  3. RITALIN [Suspect]
     Indication: ATTENTION DEFICIT/HYPERACTIVITY DISORDER
     Dosage: 10 MG, BID
     Route: 048

REACTIONS (5)
  - DEPRESSION [None]
  - HYPERTENSION [None]
  - IRRITABILITY [None]
  - LETHARGY [None]
  - PANCREATITIS [None]
